FAERS Safety Report 5684506-3 (Version None)
Quarter: 2008Q1

REPORT INFORMATION
  Report Type: 
  Country: None (occurrence: None)
  Receive Date: 20080328
  Receipt Date: 20080317
  Transmission Date: 20080703
  Serious: Yes (Hospitalization, Other)
  Sender: FDA-Public Use
  Company Number: US-ELI_LILLY_AND_COMPANY-US200803003925

PATIENT
  Sex: Female

DRUGS (1)
  1. FORTEO [Suspect]
     Dosage: 20 UG, UNK
     Dates: start: 20070101

REACTIONS (6)
  - FALL [None]
  - INFLUENZA [None]
  - INJECTION SITE BRUISING [None]
  - PELVIC FRACTURE [None]
  - THROMBOSIS [None]
  - WRIST FRACTURE [None]
